FAERS Safety Report 4360236-5 (Version None)
Quarter: 2004Q2

REPORT INFORMATION
  Report Type: 
  Country: None (occurrence: None)
  Receive Date: 20040513
  Receipt Date: 20040503
  Transmission Date: 20050107
  Serious: Yes (Other)
  Sender: FDA-Public Use
  Company Number: HQWYE794419DEC03

PATIENT
  Age: 31 Year
  Sex: Male

DRUGS (3)
  1. CORDARONE [Suspect]
     Indication: ATRIAL FIBRILLATION
     Dosage: 300 MG ONCE
     Route: 042
     Dates: start: 20031205, end: 20031205
  2. CORDARONE [Suspect]
     Indication: ATRIAL FIBRILLATION
     Dosage: 300 MG ONCE
     Route: 042
     Dates: start: 20031205
  3. PROPRANOLOL [Concomitant]

REACTIONS (4)
  - HYPOTENSION [None]
  - MEDICATION ERROR [None]
  - RASH GENERALISED [None]
  - RASH PRURITIC [None]
